FAERS Safety Report 4753557-5 (Version None)
Quarter: 2005Q3

REPORT INFORMATION
  Report Type: 
  Country: None (occurrence: None)
  Receive Date: 20050826
  Receipt Date: 20050623
  Transmission Date: 20060218
  Serious: Yes (Hospitalization)
  Sender: FDA-Public Use
  Company Number: 200511628EU

PATIENT
  Age: 68 Year
  Sex: Female

DRUGS (4)
  1. INDAPAMIDE [Suspect]
     Route: 048
     Dates: start: 20040615, end: 20050325
  2. TRIATEC [Suspect]
     Route: 048
     Dates: start: 20040615, end: 20050325
  3. PLAVIX [Concomitant]
     Dates: start: 20040615
  4. TAHOR [Concomitant]
     Dates: start: 20040715, end: 20050204

REACTIONS (2)
  - ERYTHEMA NODOSUM [None]
  - ESCHERICHIA URINARY TRACT INFECTION [None]
